FAERS Safety Report 20509873 (Version 1)
Quarter: 2022Q1

REPORT INFORMATION
  Report Type: Spontaneous
  Country: IN (occurrence: IN)
  Receive Date: 20220224
  Receipt Date: 20220224
  Transmission Date: 20220423
  Serious: Yes (Hospitalization, Other)
  Sender: FDA-Public Use
  Company Number: IN-SUN PHARMACEUTICAL INDUSTRIES LTD-2022R1-326961

PATIENT
  Age: 62 Year
  Sex: Male

DRUGS (1)
  1. LEVETIRACETAM [Suspect]
     Active Substance: LEVETIRACETAM
     Indication: Seizure
     Dosage: UNK (150 TABLETS OF 250 MG)
     Route: 048

REACTIONS (5)
  - Intentional overdose [Unknown]
  - Acute kidney injury [Recovering/Resolving]
  - Polyneuropathy [Recovering/Resolving]
  - Somnolence [Recovering/Resolving]
  - Sluggishness [Recovering/Resolving]
